FAERS Safety Report 11929478 (Version 1)
Quarter: 2016Q1

REPORT INFORMATION
  Report Type: Spontaneous
  Country: US (occurrence: US)
  Receive Date: 20160120
  Receipt Date: 20160120
  Transmission Date: 20160526
  Serious: Yes (Other)
  Sender: FDA-Public Use
  Company Number: US-009507513-1601USA005343

PATIENT
  Age: 35 Year
  Sex: Female

DRUGS (1)
  1. BELSOMRA [Suspect]
     Active Substance: SUVOREXANT
     Dosage: 15 MG, ONCE AT NIGHT
     Route: 048
     Dates: start: 20151203

REACTIONS (2)
  - Abnormal dreams [Unknown]
  - Seizure [Unknown]

NARRATIVE: CASE EVENT DATE: 201512
